FAERS Safety Report 14878484 (Version 5)
Quarter: 2018Q4

REPORT INFORMATION
  Report Type: Spontaneous
  Country: ES (occurrence: ES)
  Receive Date: 20180511
  Receipt Date: 20181011
  Transmission Date: 20190204
  Serious: Yes (Other)
  Sender: FDA-Public Use
  Company Number: ES-009507513-1805ESP001120

PATIENT
  Age: 52 Year
  Sex: Male

DRUGS (4)
  1. PEGINTERFERON ALFA-2A. [Suspect]
     Active Substance: PEGINTERFERON ALFA-2A
     Indication: FIBROSIS
     Dosage: 135 MICROGRAM/ WEEK
     Dates: start: 201402, end: 2014
  2. ACENOCOUMAROL [Concomitant]
     Active Substance: ACENOCOUMAROL
     Indication: ENDOCARDITIS
     Dosage: UNK
  3. TELAPREVIR [Suspect]
     Active Substance: TELAPREVIR
     Indication: FIBROSIS
     Dosage: 750 MG/ 8H
     Dates: start: 201402, end: 2014
  4. RIBAVIRIN. [Suspect]
     Active Substance: RIBAVIRIN
     Indication: FIBROSIS
     Dosage: 200 MG/ DAY
     Dates: start: 201402, end: 2014

REACTIONS (5)
  - Sepsis [Recovered/Resolved]
  - Bacteraemia [Recovered/Resolved]
  - Thrombocytopenia [Recovered/Resolved]
  - Staphylococcal infection [Recovered/Resolved]
  - Anaemia [Recovered/Resolved]

NARRATIVE: CASE EVENT DATE: 2014
